FAERS Safety Report 8614051-4 (Version None)
Quarter: 2012Q3

REPORT INFORMATION
  Report Type: 
  Country: None (occurrence: None)
  Receive Date: 20120823
  Receipt Date: 20120810
  Transmission Date: 20120928
  Serious: Yes (Hospitalization, Other)
  Sender: FDA-Public Use
  Company Number: US-009507513-1208USA005142

PATIENT

DRUGS (5)
  1. LOPID [Suspect]
     Dosage: 1200 MG, QPM
     Dates: end: 20051011
  2. LOPID [Suspect]
     Indication: DYSLIPIDAEMIA
     Dosage: 600 MG, QAM
     Dates: end: 20051011
  3. ZOCOR [Suspect]
     Dosage: 40 MG, UNK
  4. ZOCOR [Suspect]
     Indication: BLOOD CHOLESTEROL INCREASED
     Dosage: 80 MG, QD
     Dates: end: 20051011
  5. PHENTERMINE [Suspect]
     Indication: DECREASED APPETITE
     Dosage: 37.5 MG, UNK
     Dates: end: 20051011

REACTIONS (22)
  - HYSTERECTOMY [None]
  - TYPE 2 DIABETES MELLITUS [None]
  - OBESITY [None]
  - DYSLIPIDAEMIA [None]
  - HYPERTENSION [None]
  - BLOOD CHOLESTEROL INCREASED [None]
  - RHABDOMYOLYSIS [None]
  - POLYMYOSITIS [None]
  - HYPOGLYCAEMIA [None]
  - DIABETIC RETINOPATHY [None]
  - KIDNEY INFECTION [None]
  - BLINDNESS [None]
  - INTENTION TREMOR [None]
  - DIABETIC GASTROPARESIS [None]
  - GASTROOESOPHAGEAL REFLUX DISEASE [None]
  - DIABETIC NEUROPATHY [None]
  - OEDEMA PERIPHERAL [None]
  - TENDONITIS [None]
  - INSOMNIA [None]
  - EYE OPERATION [None]
  - DRUG HYPERSENSITIVITY [None]
  - EYE PAIN [None]
